FAERS Safety Report 21377526 (Version 1)
Quarter: 2022Q3

REPORT INFORMATION
  Report Type: Spontaneous
  Country: SE (occurrence: SE)
  Receive Date: 20220926
  Receipt Date: 20220926
  Transmission Date: 20221027
  Serious: Yes (Death, Life-Threatening, Hospitalization)
  Sender: FDA-Public Use
  Company Number: SE-Accord-234042

PATIENT
  Age: 72 Year
  Sex: Male
  Weight: 73 kg

DRUGS (15)
  1. GEMCITABINE HYDROCHLORIDE [Suspect]
     Active Substance: GEMCITABINE HYDROCHLORIDE
     Indication: Product used for unknown indication
     Dosage: 1Q2W?1000 MILLIGRAM(S)/SQ. METER ( MG/M2 )?PDF-11213000
     Route: 065
     Dates: start: 20210608, end: 20210706
  2. OXALIPLATIN [Suspect]
     Active Substance: OXALIPLATIN
     Indication: Product used for unknown indication
     Dosage: 1Q2W?100 MILLIGRAM(S)/SQ. METER ( MG/M2 )?PDF-11213000
     Route: 065
     Dates: start: 20210608, end: 20210706
  3. EPCORITAMAB [Suspect]
     Active Substance: EPCORITAMAB
     Indication: Product used for unknown indication
     Dosage: FULL DOSE: 48 MILLIGRAM WEEKLY?PDF-11209000?ROA-20066000
     Route: 058
     Dates: start: 20210622, end: 20210713
  4. EPCORITAMAB [Suspect]
     Active Substance: EPCORITAMAB
     Dosage: PRIMIMG DOSE: 0.16 MILLIGRAM, SINGLE;?PDF-11209000?ROA-20066000
     Route: 058
     Dates: start: 20210608, end: 20210608
  5. EPCORITAMAB [Suspect]
     Active Substance: EPCORITAMAB
     Dosage: INTERMEDIATE DOSE: 0.8 MILLIGRAM, SINGLE;?PDF-11209000?ROA-20066000
     Route: 058
     Dates: start: 20210615, end: 20210615
  6. LEVETIRACETAM [Concomitant]
     Active Substance: LEVETIRACETAM
     Indication: Product used for unknown indication
     Route: 065
     Dates: start: 20210706, end: 20210707
  7. PREDNISONE [Concomitant]
     Active Substance: PREDNISONE
     Indication: Product used for unknown indication
     Route: 065
     Dates: start: 20210713, end: 20210716
  8. PREDNISONE [Concomitant]
     Active Substance: PREDNISONE
     Dosage: ROA-20053000
     Route: 065
     Dates: start: 20210713, end: 20210716
  9. TOCILIZUMAB [Concomitant]
     Active Substance: TOCILIZUMAB
     Indication: Product used for unknown indication
     Route: 065
     Dates: start: 20210706, end: 20210707
  10. TOCILIZUMAB [Concomitant]
     Active Substance: TOCILIZUMAB
     Route: 065
     Dates: start: 20210706, end: 20210707
  11. CALCIUM CHLORIDE [Concomitant]
     Active Substance: CALCIUM CHLORIDE
     Indication: Product used for unknown indication
     Route: 065
     Dates: start: 20210706, end: 20210707
  12. PREDNISONE [Concomitant]
     Active Substance: PREDNISONE
     Indication: Product used for unknown indication
     Route: 065
     Dates: start: 20210706, end: 20210709
  13. ACETAMINOPHEN [Concomitant]
     Active Substance: ACETAMINOPHEN
     Indication: Product used for unknown indication
     Dosage: ROA-20053000
     Route: 048
     Dates: start: 20210713, end: 20210713
  14. ACETAMINOPHEN [Concomitant]
     Active Substance: ACETAMINOPHEN
     Route: 065
     Dates: start: 20210713, end: 20210713
  15. CETIRIZINE HYDROCHLORIDE [Concomitant]
     Active Substance: CETIRIZINE HYDROCHLORIDE
     Indication: Product used for unknown indication
     Dosage: ROA-20053000
     Route: 048
     Dates: start: 20210713, end: 20210713

REACTIONS (1)
  - Small intestinal perforation [Fatal]

NARRATIVE: CASE EVENT DATE: 20210716
